FAERS Safety Report 4889226-0 (Version None)
Quarter: 2006Q1

REPORT INFORMATION
  Report Type: 
  Country: None (occurrence: None)
  Receive Date: 20060124
  Receipt Date: 20051215
  Transmission Date: 20060701
  Serious: Yes (Death)
  Sender: FDA-Public Use
  Company Number: DE-BOEHRINGER INGELHEIM PHARMACEUTICALS, INC.-2005-DE-05500DE

PATIENT
  Sex: Female
  Weight: 50 kg

DRUGS (8)
  1. CLONIDINE [Suspect]
     Route: 042
     Dates: start: 20051126
  2. INTRATECT [Suspect]
     Indication: GUILLAIN-BARRE SYNDROME
     Route: 042
     Dates: start: 20051126, end: 20051127
  3. INTRATECT [Suspect]
     Route: 042
     Dates: start: 20051124, end: 20051125
  4. INTRATECT [Suspect]
     Route: 042
     Dates: start: 20051125, end: 20051126
  5. INTRATECT [Suspect]
     Route: 042
     Dates: start: 20051125, end: 20051126
  6. DORMICUM [Concomitant]
     Route: 042
  7. EC 77 GLUC. 5% [Concomitant]
     Route: 042
  8. OLICLINOMEL [Concomitant]
     Route: 042

REACTIONS (15)
  - ANAPHYLACTIC SHOCK [None]
  - BLOOD PRESSURE INCREASED [None]
  - BRADYCARDIA [None]
  - BRAIN DEATH [None]
  - BRAIN OEDEMA [None]
  - COMPUTERISED TOMOGRAM HEAD [None]
  - DYSPNOEA [None]
  - HYPOVENTILATION [None]
  - HYPOXIC ENCEPHALOPATHY [None]
  - PNEUMOTHORAX [None]
  - PULMONARY OEDEMA [None]
  - PUPILLARY LIGHT REFLEX TESTS ABNORMAL [None]
  - RESPIRATORY FAILURE [None]
  - SUBCUTANEOUS EMPHYSEMA [None]
  - VENTRICULAR FLUTTER [None]
